FAERS Safety Report 6528604-0 (Version None)
Quarter: 2010Q1

REPORT INFORMATION
  Report Type: 
  Country: None (occurrence: None)
  Receive Date: 20100105
  Receipt Date: 20100105
  Transmission Date: 20100710
  Serious: No
  Sender: FDA-Public Use
  Company Number: None

PATIENT
  Age: 60 Year
  Sex: Female
  Weight: 62.5964 kg

DRUGS (1)
  1. EVOXAC [Suspect]
     Indication: SJOGREN'S SYNDROME
     Dosage: 30 MG 3 X DAILY PO
     Route: 048
     Dates: start: 20051220, end: 20091220

REACTIONS (7)
  - ANXIETY [None]
  - DRUG DOSE OMISSION [None]
  - DRY EYE [None]
  - DRY MOUTH [None]
  - INSOMNIA [None]
  - MUSCLE TWITCHING [None]
  - NIGHTMARE [None]
